FAERS Safety Report 5091545-2 (Version None)
Quarter: 2006Q3

REPORT INFORMATION
  Report Type: 
  Country: None (occurrence: None)
  Receive Date: 20060829
  Receipt Date: 20060619
  Transmission Date: 20061208
  Serious: Yes (Hospitalization)
  Sender: FDA-Public Use
  Company Number: JP-ROCHE-452619

PATIENT
  Age: 63 Year
  Sex: Male
  Weight: 42 kg

DRUGS (8)
  1. ROCEPHIN [Suspect]
     Indication: PNEUMONIA
     Dosage: ROUTE REPORTED AS INTRAVENOUS (NOT OTHERWISE SPECIFIED).
     Route: 042
     Dates: start: 20060424, end: 20060424
  2. DALACIN S [Suspect]
     Indication: PNEUMONIA
     Dosage: REPORTED AS CLINDAMYCIN PHOSPHATE. ROUTE REPORTED AS INTRAVENOUS (NOT OTHERWISE SPECIFIED).
     Route: 042
     Dates: start: 20060425, end: 20060425
  3. AMIKACIN SULFATE [Suspect]
     Indication: PNEUMONIA
     Dosage: ROUTE REPORTED AS INTRAVENOUS (NOT OTHERWISE SPECIFIED).
     Route: 042
     Dates: start: 20060426, end: 20060426
  4. FOSMICIN S [Suspect]
     Indication: PNEUMONIA
     Dosage: ROUTE REPORTED AS INTRAVENOUS (NOT OTHERWISE SPECIFIED).
     Route: 042
     Dates: start: 20060426, end: 20060426
  5. CLARITH [Concomitant]
     Indication: PNEUMONIA
     Route: 048
     Dates: start: 20060502, end: 20060507
  6. DIFLUCAN [Concomitant]
     Indication: PNEUMONIA
     Route: 048
     Dates: start: 20060502, end: 20060507
  7. LEVOFLOXACIN [Concomitant]
     Indication: PNEUMONIA
     Route: 048
     Dates: start: 20060502, end: 20060507
  8. MEROPEN [Concomitant]
     Indication: PNEUMONIA
     Dosage: REPORTED AS MEROPENEM TRIHYDRATE. ON 08 MAY 2006 MEROPEN WAS RESTARTED, STOPPED 09 MAY 2006.
     Route: 042
     Dates: start: 20060425, end: 20060509

REACTIONS (3)
  - ANAPHYLACTIC REACTION [None]
  - RASH [None]
  - WHEEZING [None]
